FAERS Safety Report 9248668 (Version 1)
Quarter: 2013Q1

REPORT INFORMATION
  Report Type: Spontaneous
  Country: US (occurrence: None)
  Receive Date: 20130305
  Receipt Date: 20130305
  Transmission Date: 20140127
  Serious: Yes (Other)
  Sender: FDA-Public Use
  Company Number: 163-21880-12053429

PATIENT
  Age: 71 Year
  Sex: Male

DRUGS (12)
  1. REVLIMID [Suspect]
     Indication: PLASMA CELL MYELOMA
     Dosage: 25 MG, DAILY X 21 DAYS Q 28 DAYS, PO
     Route: 048
     Dates: start: 201105, end: 201112
  2. DECARDON (DEXAMETHASONE) [Concomitant]
  3. PAMIDRONATE DISODIUM (PAMIDRONATE DISODIUM) [Concomitant]
  4. CALCIUM (CALCIUM) [Concomitant]
  5. COUMADIN (WARFARIN SODIUM) [Concomitant]
  6. CYCLOBENZAPRINE HCL (CYCLBENZAPRINE) [Concomitant]
  7. FINASTERIDE (FINASTERIDE) [Concomitant]
  8. HYDROCODONE - ACETAMINOPHEN (VICODIN) [Concomitant]
  9. LEVOTHYROID (LEVOTHYROXINE SODIUM) [Concomitant]
  10. LIPITOR (ATORVASTATIN) [Concomitant]
  11. OMEPRAZOLE (OMEPRAZOLE) [Concomitant]
  12. TOPROL XL (METOPROLOL SUCCINATE) (100 MILLIGRAM) (METOPROLOL SUCCINATE) [Concomitant]

REACTIONS (1)
  - Cataract [None]
